FAERS Safety Report 4639088-1 (Version None)
Quarter: 2005Q2

REPORT INFORMATION
  Report Type: 
  Country: None (occurrence: None)
  Receive Date: 20050418
  Receipt Date: 20050405
  Transmission Date: 20051028
  Serious: Yes (Death)
  Sender: FDA-Public Use
  Company Number: 2005056020

PATIENT
  Age: 38 Year
  Sex: Female

DRUGS (4)
  1. GEODON [Suspect]
     Indication: DEPRESSION
  2. ALL OTHER NON-THERAPEUTIC PRODUCTS (ALL OTHER NON-THERAPEUTIC PRODUCTS [Suspect]
     Indication: ILL-DEFINED DISORDER
  3. CLOMIPRAMINE HCL [Concomitant]
  4. THIORIDAZINE HCL [Concomitant]

REACTIONS (3)
  - COMPLETED SUICIDE [None]
  - DRUG EXPOSURE DURING PREGNANCY [None]
  - PREGNANCY [None]
